FAERS Safety Report 15285654 (Version 1)
Quarter: 2018Q3

REPORT INFORMATION
  Report Type: Spontaneous
  Country: US (occurrence: US)
  Receive Date: 20180802
  Receipt Date: 20180802
  Transmission Date: 20181010
  Serious: Yes (Other)
  Sender: FDA-Public Use
  Company Number: None

PATIENT
  Age: 51 Year
  Sex: Female
  Weight: 60.75 kg

DRUGS (2)
  1. LUCKY SUPERSOFT MUSCLE AND JOINT [Suspect]
     Active Substance: CAMPHOR (NATURAL)\MENTHOL\METHYL SALICYLATE
     Indication: MYALGIA
     Dosage: ?          OTHER STRENGTH:DROPS;QUANTITY:2 DROP(S);OTHER FREQUENCY:TOOK ONE TIME IN M;?
     Route: 061
  2. HYDROCHLOROTHIAZIDE. [Concomitant]
     Active Substance: HYDROCHLOROTHIAZIDE

REACTIONS (1)
  - Application site pain [None]

NARRATIVE: CASE EVENT DATE: 20180802
